FAERS Safety Report 5146264-0 (Version None)
Quarter: 2006Q4

REPORT INFORMATION
  Report Type: 
  Country: None (occurrence: None)
  Receive Date: 20061108
  Receipt Date: 20061025
  Transmission Date: 20070319
  Serious: Yes (Other)
  Sender: FDA-Public Use
  Company Number: GB-ELI_LILLY_AND_COMPANY-GB200610004571

PATIENT
  Age: 42 Year
  Sex: Female
  Weight: 74 kg

DRUGS (4)
  1. CYMBALTA [Suspect]
     Dosage: 60 MG, UNK
     Route: 048
     Dates: start: 20060714, end: 20060714
  2. ETORICOXIB [Concomitant]
     Dosage: 80 MG, DAILY (1/D)
     Route: 048
     Dates: start: 20040521
  3. METHOCARBAMOL [Concomitant]
     Dosage: 1.5 MG, 4/D
     Route: 048
     Dates: start: 20040408
  4. ZAMADOL [Concomitant]
     Dosage: 100 MG, 2/D
     Route: 048
     Dates: start: 20041029

REACTIONS (3)
  - FLUSHING [None]
  - SKIN LESION [None]
  - VASCULITIS [None]
